FAERS Safety Report 19496395 (Version 1)
Quarter: 2021Q3

REPORT INFORMATION
  Report Type: Spontaneous
  Country: US (occurrence: US)
  Receive Date: 20210706
  Receipt Date: 20210706
  Transmission Date: 20211014
  Serious: Yes (Other)
  Sender: FDA-Public Use
  Company Number: US-SA-2021SA219017

PATIENT
  Age: 61 Year
  Sex: Male

DRUGS (2)
  1. ZANTAC [Suspect]
     Active Substance: RANITIDINE HYDROCHLORIDE
     Indication: GASTROOESOPHAGEAL REFLUX DISEASE
  2. ZANTAC [Suspect]
     Active Substance: RANITIDINE HYDROCHLORIDE
     Indication: DYSPEPSIA
     Dosage: 150 MG, QD
     Dates: start: 200201, end: 201910

REACTIONS (5)
  - Hepatic cancer [Unknown]
  - Colorectal cancer [Unknown]
  - Bladder cancer stage IV [Not Recovered/Not Resolved]
  - Disease progression [Not Recovered/Not Resolved]
  - Gallbladder cancer stage IV [Not Recovered/Not Resolved]

NARRATIVE: CASE EVENT DATE: 20130101
